FAERS Safety Report 6609627-X (Version None)
Quarter: 2010Q1

REPORT INFORMATION
  Report Type: 
  Country: None (occurrence: None)
  Receive Date: 20100302
  Receipt Date: 20100224
  Transmission Date: 20100710
  Serious: Yes (Death)
  Sender: FDA-Public Use
  Company Number: US-BRISTOL-MYERS SQUIBB COMPANY-14976799

PATIENT
  Age: 67 Year
  Sex: Male
  Weight: 150 kg

DRUGS (2)
  1. COUMADIN [Suspect]
     Indication: ATRIAL FIBRILLATION
     Dosage: REGIMEN 1/1=10MG.
     Route: 048
     Dates: start: 20091231
  2. LOVENOX [Suspect]
     Indication: ATRIAL FIBRILLATION
     Dosage: REGIMEN 12/30 TO 1/1/10
     Route: 058

REACTIONS (2)
  - HAEMATOMA [None]
  - RENAL FAILURE [None]
